FAERS Safety Report 7965923-5 (Version None)
Quarter: 2011Q4

REPORT INFORMATION
  Report Type: 
  Country: None (occurrence: None)
  Receive Date: 20111208
  Receipt Date: 20111128
  Transmission Date: 20120403
  Serious: Yes (Other)
  Sender: FDA-Public Use
  Company Number: BR-GLAXOSMITHKLINE-B0767520A

PATIENT
  Age: 48 Year
  Sex: Male

DRUGS (1)
  1. ACITRETIN [Suspect]
     Indication: PSORIASIS
     Dosage: 25MG PER DAY
     Route: 048

REACTIONS (2)
  - ANGIOEDEMA [None]
  - PERIORBITAL OEDEMA [None]
